FAERS Safety Report 4456871-6 (Version None)
Quarter: 2004Q3

REPORT INFORMATION
  Report Type: 
  Country: None (occurrence: None)
  Receive Date: 20040921
  Receipt Date: 20040907
  Transmission Date: 20050211
  Serious: Yes (Hospitalization, Other)
  Sender: FDA-Public Use
  Company Number: 2004S1000181

PATIENT
  Age: 52 Year
  Sex: Male
  Weight: 80 kg

DRUGS (5)
  1. CUBICIN [Suspect]
     Indication: INTERVERTEBRAL DISCITIS
     Dosage: 480 MG; Q24H; IV
     Route: 042
     Dates: start: 20040723, end: 20040826
  2. CUBICIN [Suspect]
     Indication: OSTEOMYELITIS
     Dosage: 480 MG; Q24H; IV
     Route: 042
     Dates: start: 20040723, end: 20040826
  3. CUBICIN [Suspect]
     Indication: SPINAL DISORDER
     Dosage: 480 MG; Q24H; IV
     Route: 042
     Dates: start: 20040723, end: 20040826
  4. PREDNISONE [Concomitant]
  5. VANCOMYCIN [Concomitant]

REACTIONS (5)
  - CONDITION AGGRAVATED [None]
  - INFLAMMATION [None]
  - OSTEOMYELITIS [None]
  - SPINAL DISORDER [None]
  - STAPHYLOCOCCAL BACTERAEMIA [None]
